FAERS Safety Report 5272641-3 (Version None)
Quarter: 2007Q1

REPORT INFORMATION
  Report Type: 
  Country: None (occurrence: None)
  Receive Date: 20061219
  Receipt Date: 20060925
  Transmission Date: 20070707
  Serious: Yes (Hospitalization)
  Sender: FDA-Public Use
  Company Number: US-JNJFOC-20060803039

PATIENT
  Age: 46 Year
  Sex: Female
  Weight: 94.2575 kg

DRUGS (10)
  1. ORTHO EVRA [Suspect]
     Indication: DRUG USE FOR UNKNOWN INDICATION
     Dosage: TRANSDERMAL
     Route: 062
     Dates: start: 20041001, end: 20051001
  2. ORAL CONTRACEPTIVES (ORAL CONTRACEPTIVES NOS) UNSPECIFIED [Suspect]
     Indication: DRUG USE FOR UNKNOWN INDICATION
     Dosage: ORAL
     Route: 048
     Dates: end: 20060105
  3. CYMBALTA [Concomitant]
  4. ZESTRIL [Concomitant]
  5. SOMA [Concomitant]
  6. LEVBID (HYOSCYAMINE SULFATE) [Concomitant]
  7. XANAX [Concomitant]
  8. PAXIL CR [Concomitant]
  9. NEXIUM [Concomitant]
  10. HYDROCHLOROTHIAZIDE [Concomitant]

REACTIONS (1)
  - CEREBROVASCULAR ACCIDENT [None]
